FAERS Safety Report 5258995-2 (Version None)
Quarter: 2007Q1

REPORT INFORMATION
  Report Type: 
  Country: None (occurrence: None)
  Receive Date: 20070305
  Receipt Date: 20070227
  Transmission Date: 20070707
  Serious: Yes (Hospitalization)
  Sender: FDA-Public Use
  Company Number: 2007SP003701

PATIENT
  Age: 45 Year
  Sex: Female

DRUGS (1)
  1. INTRON A [Suspect]
     Indication: MALIGNANT MELANOMA
     Dosage: 15 MIU;TIW;SC
     Route: 058
     Dates: end: 20061001

REACTIONS (1)
  - GASTROINTESTINAL TOXICITY [None]
